FAERS Safety Report 8816737 (Version 3)
Quarter: 2013Q1

REPORT INFORMATION
  Report Type: Spontaneous
  Country: US (occurrence: None)
  Receive Date: 20121001
  Receipt Date: 20130308
  Transmission Date: 20140127
  Serious: Yes (Hospitalization)
  Sender: FDA-Public Use
  Company Number: JPI-P-025326

PATIENT
  Age: 58 Year
  Sex: Male
  Weight: 88.45 kg

DRUGS (6)
  1. XYREM [Suspect]
     Indication: CATAPLEXY
     Dosage: (3 GM,2 IN 1 D)
     Route: 048
     Dates: start: 20080829
  2. LEVOTHYROXINE SODIUM [Concomitant]
  3. LIOTHYRONINE SODIUM [Concomitant]
  4. TESTOSTERONE (CREAM) [Concomitant]
  5. CLONAZEPAM [Concomitant]
  6. CARVEDILOL [Concomitant]

REACTIONS (9)
  - Memory impairment [None]
  - Headache [None]
  - Cerebral haemorrhage [None]
  - Arachnoid cyst [None]
  - Anxiety [None]
  - Stress [None]
  - Insomnia [None]
  - Atrophy [None]
  - Drug effect decreased [None]
